FAERS Safety Report 25651517 (Version 1)
Quarter: 2025Q3

REPORT INFORMATION
  Report Type: Spontaneous
  Country: US (occurrence: US)
  Receive Date: 20250806
  Receipt Date: 20250806
  Transmission Date: 20251020
  Serious: Yes (Hospitalization)
  Sender: SAREPTA THERAPEUTICS
  Company Number: US-SAREPTA THERAPEUTICS INC.-SRP2025-006294

PATIENT
  Sex: Male
  Weight: 41 kg

DRUGS (5)
  1. ELEVIDYS [Suspect]
     Active Substance: DELANDISTROGENE MOXEPARVOVEC-ROKL
     Indication: Product used for unknown indication
     Route: 042
     Dates: start: 20250529, end: 20250529
  2. PREDNISONE [Concomitant]
     Active Substance: PREDNISONE
     Indication: Product used for unknown indication
  3. PREDNISONE [Concomitant]
     Active Substance: PREDNISONE
     Dosage: 60 MILLIGRAM DAILY (AFTER TREATMENT)
  4. PREDNISONE [Concomitant]
     Active Substance: PREDNISONE
     Dates: start: 20250729
  5. SIROLIMUS [Concomitant]
     Active Substance: SIROLIMUS
     Indication: Product used for unknown indication
     Dosage: 2.5 MILLIGRAM, QD

REACTIONS (1)
  - Hepatic enzyme increased [Not Recovered/Not Resolved]
